FAERS Safety Report 7343858-9 (Version None)
Quarter: 2011Q1

REPORT INFORMATION
  Report Type: 
  Country: None (occurrence: None)
  Receive Date: 20110310
  Receipt Date: 20110224
  Transmission Date: 20110831
  Serious: Yes (Hospitalization, Other)
  Sender: FDA-Public Use
  Company Number: RU-ROCHE-761883

PATIENT
  Age: 70 Year
  Sex: Male

DRUGS (6)
  1. ACTEMRA [Suspect]
     Indication: RHEUMATOID ARTHRITIS
     Route: 042
     Dates: start: 20110121, end: 20110201
  2. METHOTREXATE [Concomitant]
     Indication: RHEUMATOID ARTHRITIS
  3. MELOXICAM [Concomitant]
  4. PREDNISONE [Concomitant]
  5. SUPRASTIN [Concomitant]
     Dosage: DRUG NAME: SUPRASTINUM
  6. FOLIC ACID [Concomitant]

REACTIONS (10)
  - PRURITUS [None]
  - HAEMATOTOXICITY [None]
  - RASH [None]
  - RED BLOOD CELL SEDIMENTATION RATE INCREASED [None]
  - LEUKOPENIA [None]
  - THROMBOCYTOPENIA [None]
  - TOXIC SKIN ERUPTION [None]
  - PROTEIN TOTAL DECREASED [None]
  - BLOOD ALKALINE PHOSPHATASE INCREASED [None]
  - HORMONE LEVEL ABNORMAL [None]
